FAERS Safety Report 24769426 (Version 1)
Quarter: 2024Q4

REPORT INFORMATION
  Report Type: Spontaneous
  Country: US (occurrence: US)
  Receive Date: 20241224
  Receipt Date: 20241224
  Transmission Date: 20250115
  Serious: Yes (Disabling, Other)
  Sender: GLENMARK
  Company Number: US-MLMSERVICE-20241210-PI285322-00177-1

PATIENT

DRUGS (3)
  1. TACROLIMUS [Suspect]
     Active Substance: TACROLIMUS
     Indication: Immunosuppressant drug therapy
     Dosage: UNK, QD (DAILY)
     Route: 065
  2. HYDROCORTISONE [Suspect]
     Active Substance: HYDROCORTISONE
     Indication: Immunosuppressant drug therapy
     Dosage: UNK, QD (DAILY)
     Route: 065
  3. ZOLEDRONIC ACID [Concomitant]
     Active Substance: ZOLEDRONIC ACID
     Indication: Osteopenia
     Dosage: CONTINUED RECEIVING YEARLY INFUSION
     Route: 065

REACTIONS (4)
  - Spinal fracture [Unknown]
  - Kyphosis [Unknown]
  - Body height decreased [Unknown]
  - Osteoporosis [Recovering/Resolving]
